FAERS Safety Report 4782872-4 (Version None)
Quarter: 2005Q3

REPORT INFORMATION
  Report Type: 
  Country: None (occurrence: None)
  Receive Date: 20050929
  Receipt Date: 20050920
  Transmission Date: 20060218
  Serious: Yes (Other)
  Sender: FDA-Public Use
  Company Number: PHHO2005BR14876

PATIENT
  Age: 38 Year
  Sex: Female
  Weight: 74 kg

DRUGS (3)
  1. ZELMAC / HTF 919A [Suspect]
     Indication: CONSTIPATION
     Dosage: 6 MG, BID
     Route: 048
     Dates: start: 20050101
  2. DIAZEPAM [Concomitant]
     Indication: SLEEP DISORDER
  3. PURAN T4 [Concomitant]

REACTIONS (6)
  - ABDOMINAL DISTENSION [None]
  - ABDOMINAL PAIN [None]
  - CONSTIPATION [None]
  - DRUG INEFFECTIVE [None]
  - HEADACHE [None]
  - WEIGHT DECREASED [None]
